FAERS Safety Report 24185609 (Version 1)
Quarter: 2024Q3

REPORT INFORMATION
  Report Type: Spontaneous
  Country: US (occurrence: US)
  Receive Date: 20240807
  Receipt Date: 20240807
  Transmission Date: 20241017
  Serious: Yes (Other)
  Sender: INCYTE
  Company Number: US-INCYTE CORPORATION-2024IN008135

PATIENT

DRUGS (1)
  1. JAKAFI [Suspect]
     Active Substance: RUXOLITINIB
     Indication: Myelofibrosis
     Dosage: TAKING BOTH 5 AND 10 MG TABLETS FOR TOTAL DAILY DOSING OF 15MG TWICE DAILY
     Route: 048

REACTIONS (2)
  - Haemoglobin decreased [Unknown]
  - Fatigue [Unknown]
